FAERS Safety Report 9506193 (Version 1)
Quarter: 2013Q1

REPORT INFORMATION
  Report Type: Spontaneous
  Country: US (occurrence: None)
  Receive Date: 20130301
  Receipt Date: 20130301
  Transmission Date: 20140127
  Serious: Yes (Hospitalization)
  Sender: FDA-Public Use
  Company Number: RB-46053-2012

PATIENT
  Sex: Female

DRUGS (2)
  1. SUBOXONE [Suspect]
     Indication: DRUG DEPENDENCE
     Dosage: 12 MG TRANSPLACENTAL
     Route: 064
  2. BUPRENORPHINE [Suspect]
     Dosage: 6MG/ DAILY TRANSPLACENTAL
     Dates: start: 2010, end: 20110804

REACTIONS (1)
  - Foetal exposure during pregnancy [None]
